FAERS Safety Report 11325862 (Version 1)
Quarter: 2015Q3

REPORT INFORMATION
  Report Type: Spontaneous
  Country: US (occurrence: US)
  Receive Date: 20150731
  Receipt Date: 20150731
  Transmission Date: 20151125
  Serious: No
  Sender: FDA-Public Use
  Company Number: US-ROCHE-1312862

PATIENT
  Sex: Female

DRUGS (10)
  1. INCIVEK [Suspect]
     Active Substance: TELAPREVIR
     Indication: CHRONIC HEPATITIS C
     Route: 065
     Dates: start: 20131120
  2. COPEGUS [Suspect]
     Active Substance: RIBAVIRIN
     Route: 048
  3. DILAUDID [Concomitant]
     Active Substance: HYDROMORPHONE HYDROCHLORIDE
  4. CELEXA (UNITED STATES) [Concomitant]
     Route: 065
  5. ZYRTEC [Concomitant]
     Active Substance: CETIRIZINE HYDROCHLORIDE
     Indication: HYPERSENSITIVITY
  6. PEGASYS [Suspect]
     Active Substance: PEGINTERFERON ALFA-2A
     Indication: CHRONIC HEPATITIS C
     Route: 058
     Dates: start: 20131120
  7. CELEXA (UNITED STATES) [Concomitant]
     Route: 065
  8. COPEGUS [Suspect]
     Active Substance: RIBAVIRIN
     Indication: CHRONIC HEPATITIS C
     Dosage: DIVIDED DOSES
     Route: 048
     Dates: start: 20131120
  9. VALIUM [Suspect]
     Active Substance: DIAZEPAM
     Indication: PRODUCT USED FOR UNKNOWN INDICATION
     Route: 065
  10. ALKA-SELTZER (UNITED STATES) [Concomitant]

REACTIONS (12)
  - Urinary hesitation [Unknown]
  - Coordination abnormal [Unknown]
  - Pyrexia [Unknown]
  - Stress [Unknown]
  - Confusional state [Unknown]
  - Fall [Unknown]
  - Seizure [Unknown]
  - Hypersomnia [Unknown]
  - Pain [Unknown]
  - Micturition urgency [Unknown]
  - Tremor [Unknown]
  - Feeling hot [Unknown]
